FAERS Safety Report 15662068 (Version 2)
Quarter: 2019Q4

REPORT INFORMATION
  Report Type: Spontaneous
  Country: US (occurrence: US)
  Receive Date: 20181127
  Receipt Date: 20191011
  Transmission Date: 20200122
  Serious: Yes (Other)
  Sender: FDA-Public Use
  Company Number: US-ELI_LILLY_AND_COMPANY-US201811010972

PATIENT
  Sex: Male

DRUGS (5)
  1. CIALIS [Suspect]
     Active Substance: TADALAFIL
     Dosage: 5 MG, 2/W
     Route: 048
     Dates: start: 20060718
  2. LEVITRA [Concomitant]
     Active Substance: VARDENAFIL HYDROCHLORIDE
     Indication: ERECTILE DYSFUNCTION
     Dosage: 20 MG
     Dates: start: 20090806
  3. VIAGRA [Suspect]
     Active Substance: SILDENAFIL CITRATE
     Indication: ERECTILE DYSFUNCTION
     Dosage: UNK, UNKNOWN
     Route: 065
     Dates: start: 2006, end: 2014
  4. CIALIS [Suspect]
     Active Substance: TADALAFIL
     Indication: ERECTILE DYSFUNCTION
     Dosage: 2.5 MG, 2/W
     Route: 048
     Dates: start: 20060718
  5. CIALIS [Suspect]
     Active Substance: TADALAFIL
     Dosage: 20 MG, 2/W
     Route: 048
     Dates: end: 20141215

REACTIONS (9)
  - Melanoma recurrent [Unknown]
  - Vitreous floaters [Unknown]
  - Choroid melanoma [Unknown]
  - Photopsia [Unknown]
  - Visual acuity reduced [Unknown]
  - Retinal haemorrhage [Unknown]
  - Visual acuity reduced [Unknown]
  - Radiation retinopathy [Unknown]
  - Retinal exudates [Unknown]

NARRATIVE: CASE EVENT DATE: 20130104
